FAERS Safety Report 8942641 (Version 2)
Quarter: 2013Q1

REPORT INFORMATION
  Report Type: Spontaneous
  Country: FR (occurrence: FR)
  Receive Date: 20121204
  Receipt Date: 20130205
  Transmission Date: 20140127
  Serious: Yes (Death, Hospitalization)
  Sender: FDA-Public Use
  Company Number: FR-JNJFOC-20121114984

PATIENT
  Age: 33 Year
  Sex: Male

DRUGS (14)
  1. INTELENCE [Suspect]
     Indication: HIV INFECTION
     Route: 048
     Dates: start: 20121024, end: 20121112
  2. MOTILIUM [Suspect]
     Indication: PRODUCT USED FOR UNKNOWN INDICATION
     Route: 065
  3. KALETRA [Suspect]
     Indication: HIV INFECTION
     Route: 048
     Dates: start: 20121024, end: 20121112
  4. LAMOTRIGINE [Suspect]
     Indication: PARTIAL SEIZURES
     Route: 048
     Dates: start: 20121031, end: 20121112
  5. URBANYL [Suspect]
     Indication: PARTIAL SEIZURES
     Route: 048
     Dates: start: 20121031, end: 20121112
  6. BACTRIM FORTE [Suspect]
     Indication: PROPHYLAXIS
     Route: 048
     Dates: start: 20120923, end: 20121112
  7. FLUCONAZOLE [Suspect]
     Indication: ORAL CANDIDIASIS
     Route: 048
     Dates: start: 20120929, end: 20121112
  8. AUGMENTIN [Suspect]
     Indication: PNEUMONIA ASPIRATION
     Route: 048
     Dates: start: 201211, end: 201211
  9. AUGMENTIN [Suspect]
     Indication: RESPIRATORY TRACT CONGESTION
     Route: 048
     Dates: start: 201211, end: 201211
  10. AUGMENTIN [Suspect]
     Indication: PYREXIA
     Route: 048
     Dates: start: 201211, end: 201211
  11. INTERLEUKINS [Suspect]
     Indication: PROGRESSIVE MULTIFOCAL LEUKOENCEPHALOPATHY
     Route: 058
     Dates: start: 20121109, end: 20121109
  12. INTERLEUKINS [Suspect]
     Indication: PROGRESSIVE MULTIFOCAL LEUKOENCEPHALOPATHY
     Route: 058
     Dates: start: 20121101, end: 20121101
  13. RIVOTRIL [Suspect]
     Indication: CONVULSION
     Route: 065
  14. KEPPRA [Suspect]
     Indication: CONVULSION
     Route: 065

REACTIONS (8)
  - Death [Fatal]
  - Apnoea [Fatal]
  - Cardiac arrest [Fatal]
  - Convulsion [Unknown]
  - Pyrexia [Unknown]
  - Respiratory tract congestion [Unknown]
  - Decreased appetite [Unknown]
  - Weight decreased [Unknown]
